FAERS Safety Report 10164415 (Version 2)
Quarter: 2014Q2

REPORT INFORMATION
  Report Type: Spontaneous
  Country: US (occurrence: US)
  Receive Date: 20140510
  Receipt Date: 20140510
  Transmission Date: 20141212
  Serious: No
  Sender: FDA-Public Use
  Company Number: 2006PV011301

PATIENT
  Age: 64 Year
  Sex: Female

DRUGS (4)
  1. BYETTA PEN DISPOSABLE [Suspect]
     Indication: TYPE 2 DIABETES MELLITUS
     Dosage: 1MAY06-UNK:10MCG?1APR06-30APR06:5MCG
     Route: 058
     Dates: start: 20060401
  2. NIACIN [Concomitant]
     Dates: start: 20060331
  3. GLUCOTROL [Concomitant]
  4. AVANDIA [Concomitant]

REACTIONS (3)
  - Drug ineffective [Not Recovered/Not Resolved]
  - Injection site rash [Not Recovered/Not Resolved]
  - Incorrect product storage [Unknown]
